FAERS Safety Report 23835815 (Version 1)
Quarter: 2024Q2

REPORT INFORMATION
  Report Type: Spontaneous
  Country: CH (occurrence: CH)
  Receive Date: 20240509
  Receipt Date: 20240509
  Transmission Date: 20240715
  Serious: No
  Sender: FDA-Public Use
  Company Number: None

PATIENT
  Age: 78 Year
  Sex: Female
  Weight: 55 kg

DRUGS (13)
  1. ZOMETA [Suspect]
     Active Substance: ZOLEDRONIC ACID
     Indication: Plasma cell myeloma
     Dosage: 4 MG (PAUSE IN 2020/10 DUE TO PERIODONTAL ABSCESS AND TOOTH EXTRACTION 45, 47.)
     Route: 042
     Dates: start: 20190320, end: 202010
  2. ZOMETA [Suspect]
     Active Substance: ZOLEDRONIC ACID
     Dosage: 4 MG
     Route: 042
     Dates: start: 202103, end: 20230330
  3. REVLIMID [Concomitant]
     Active Substance: LENALIDOMIDE
     Indication: Plasma cell myeloma
     Dosage: DOSAGE UNKNOWN
     Route: 048
     Dates: start: 201905, end: 201910
  4. REVLIMID [Concomitant]
     Active Substance: LENALIDOMIDE
     Dosage: D1-21 Q28 ; CYCLICAL
     Route: 048
     Dates: start: 201911, end: 202209
  5. REVLIMID [Concomitant]
     Active Substance: LENALIDOMIDE
     Dosage: D1-21 Q28 ; CYCLICAL
     Route: 048
     Dates: start: 202211, end: 20230613
  6. TORSEMIDE [Concomitant]
     Active Substance: TORSEMIDE
     Indication: Hypertensive heart disease
     Route: 048
     Dates: end: 20230613
  7. COVERAM [Concomitant]
     Active Substance: AMLODIPINE\PERINDOPRIL
     Indication: Hypertensive heart disease
     Dosage: 5/10 MG  0.25-0-0
     Route: 048
     Dates: end: 202307
  8. BURGERSTEIN ZINKGLUKONAT [Concomitant]
     Indication: Malnutrition
     Dosage: 0-0-1-0 (10)
     Route: 048
     Dates: end: 202307
  9. BURGERSTEIN MULTIVITAMIN [Concomitant]
     Indication: Malnutrition
     Dosage: 1--0--0
     Route: 048
     Dates: end: 202307
  10. KALIUM HAUSMANN KCL [Concomitant]
     Indication: Malnutrition
     Dosage: 1-0-1
     Route: 048
     Dates: end: 202307
  11. CALCIUM\CHOLECALCIFEROL [Concomitant]
     Active Substance: CALCIUM\CHOLECALCIFEROL
     Indication: Product used for unknown indication
     Dosage: 1000 MG/ 800 IE 1-0-1
     Route: 048
     Dates: end: 202307
  12. FEMANNOSE [Concomitant]
     Indication: Urinary tract infection
     Dosage: 1-0-0
     Route: 048
     Dates: end: 202307
  13. MORPHINE SULFATE [Concomitant]
     Active Substance: MORPHINE SULFATE
     Indication: Pain
     Dosage: 1-0-0
     Route: 048
     Dates: end: 202307

REACTIONS (1)
  - Osteonecrosis of jaw [Recovering/Resolving]

NARRATIVE: CASE EVENT DATE: 20230616
